FAERS Safety Report 19157379 (Version 1)
Quarter: 2021Q2

REPORT INFORMATION
  Report Type: Spontaneous
  Country: US (occurrence: US)
  Receive Date: 20210419
  Receipt Date: 20210419
  Transmission Date: 20210717
  Serious: No
  Sender: FDA-Public Use
  Company Number: None

PATIENT
  Age: 67 Year
  Sex: Male
  Weight: 74.3 kg

DRUGS (1)
  1. NOREPINEPHRINE 16MG W/ 250 ML NS FOR PREMIX [Suspect]
     Active Substance: NOREPINEPHRINE
     Indication: HYPOTENSION
     Dosage: ?          OTHER FREQUENCY:3.75 ML/ HR;?
     Route: 041

REACTIONS (3)
  - Wrong strength [None]
  - Drug ineffective [None]
  - Product quality issue [None]

NARRATIVE: CASE EVENT DATE: 20210208
